FAERS Safety Report 10209577 (Version 1)
Quarter: 2014Q2

REPORT INFORMATION
  Report Type: Spontaneous
  Country: US (occurrence: US)
  Receive Date: 20140602
  Receipt Date: 20140602
  Transmission Date: 20141212
  Serious: No
  Sender: FDA-Public Use
  Company Number: US-009507513-1405USA012802

PATIENT
  Sex: Male

DRUGS (6)
  1. PEGINTRON [Suspect]
     Indication: HEPATITIS C
     Dosage: 1ST ROUND
  2. PEGINTRON [Suspect]
     Dosage: 2ND ROUND
  3. VICTRELIS [Suspect]
     Indication: HEPATITIS C
     Dosage: 1ST ROUND
     Route: 048
  4. VICTRELIS [Suspect]
     Dosage: 2ND ROUND
     Route: 048
  5. RIBASPHERE [Suspect]
     Indication: HEPATITIS C
     Dosage: 1ST ROUND
  6. RIBASPHERE [Suspect]
     Dosage: 2ND ROUND

REACTIONS (1)
  - Hepatitis C [Recovered/Resolved]
